FAERS Safety Report 21683132 (Version 2)
Quarter: 2022Q4

REPORT INFORMATION
  Report Type: Report from Study
  Country: GB (occurrence: GB)
  Receive Date: 20221205
  Receipt Date: 20221209
  Transmission Date: 20230113
  Serious: Yes (Death, Other)
  Sender: FDA-Public Use
  Company Number: GB-PFIZER INC-PV202200115401

PATIENT

DRUGS (3)
  1. OXALIPLATIN [Suspect]
     Active Substance: OXALIPLATIN
     Indication: Rectal cancer
     Dosage: 130 MG/M2, CYCLIC (ON DAY 1; 4 CYCLES), EVERY 3 WEEKS
  2. CAPECITABINE [Suspect]
     Active Substance: CAPECITABINE
     Indication: Rectal cancer
     Dosage: 1000 MG/M2 (BID 14 DAYS EVERY 3 WEEKS)
  3. CAPECITABINE [Suspect]
     Active Substance: CAPECITABINE
     Dosage: 1650 MG/M2, DAILY, CONTINUOUSLY WITHOUT INTERRUPTION

REACTIONS (1)
  - Pulmonary embolism [Fatal]
